FAERS Safety Report 11288353 (Version 1)
Quarter: 2015Q3

REPORT INFORMATION
  Report Type: Spontaneous
  Country: US (occurrence: US)
  Receive Date: 20150721
  Receipt Date: 20150721
  Transmission Date: 20151125
  Serious: No
  Sender: FDA-Public Use
  Company Number: US-ROXANE LABORATORIES, INC.-2015-RO-01218RO

PATIENT
  Sex: Female
  Weight: 86 kg

DRUGS (7)
  1. VITAMIN D [Concomitant]
     Active Substance: CHOLECALCIFEROL
     Route: 065
  2. LEVEMIR [Concomitant]
     Active Substance: INSULIN DETEMIR
     Route: 065
  3. PREDNISONE. [Suspect]
     Active Substance: PREDNISONE
     Indication: PRODUCT USED FOR UNKNOWN INDICATION
     Route: 048
  4. WARFARIN [Concomitant]
     Active Substance: WARFARIN
     Route: 065
  5. CRESTOR [Concomitant]
     Active Substance: ROSUVASTATIN CALCIUM
     Indication: BLOOD CHOLESTEROL INCREASED
     Route: 065
  6. FUROSEMIDE. [Concomitant]
     Active Substance: FUROSEMIDE
     Route: 065
  7. SOTALOL. [Concomitant]
     Active Substance: SOTALOL
     Route: 065

REACTIONS (7)
  - Nausea [Unknown]
  - Dizziness [Unknown]
  - Pain [Unknown]
  - Hypertension [Unknown]
  - Contusion [Unknown]
  - Weight decreased [Unknown]
  - Swelling [Unknown]

NARRATIVE: CASE EVENT DATE: 2009
